FAERS Safety Report 9631691 (Version 1)
Quarter: 2013Q4

REPORT INFORMATION
  Report Type: Spontaneous
  Country: FR (occurrence: FR)
  Receive Date: 20131018
  Receipt Date: 20131018
  Transmission Date: 20140711
  Serious: Yes (Life-Threatening, Hospitalization, Other)
  Sender: FDA-Public Use
  Company Number: FR-ELI_LILLY_AND_COMPANY-FR201310003190

PATIENT
  Age: 58 Year
  Sex: Female

DRUGS (25)
  1. PROZAC [Suspect]
     Indication: PRODUCT USED FOR UNKNOWN INDICATION
     Dosage: 40 MG, QD
     Route: 048
     Dates: end: 20130909
  2. ZELITREX [Suspect]
     Indication: ANTIVIRAL PROPHYLAXIS
     Dosage: 500 MG, QD
     Route: 048
     Dates: start: 201306, end: 20130909
  3. NORSET [Suspect]
     Indication: PRODUCT USED FOR UNKNOWN INDICATION
     Dosage: 15 MG, QD
     Route: 048
     Dates: end: 20130909
  4. ZYVOXID [Suspect]
     Indication: SEPSIS
     Dosage: 1200 MG, QD
     Route: 048
     Dates: start: 20130827, end: 20130909
  5. ZYVOXID [Suspect]
     Dosage: 1 DF, UNKNOWN
     Route: 047
  6. VESANOID [Suspect]
     Indication: RETINOIC ACID SYNDROME
     Dosage: 70 MG, QD
     Route: 048
     Dates: start: 20130423, end: 20130502
  7. VESANOID [Suspect]
     Dosage: 1 DF, UNKNOWN
     Route: 065
     Dates: start: 20130508, end: 20130515
  8. VESANOID [Suspect]
     Dosage: 1 DF, UNKNOWN
     Route: 065
     Dates: start: 20130524, end: 20130529
  9. VESANOID [Suspect]
     Dosage: 1 DF, UNKNOWN
     Route: 065
     Dates: start: 20130626, end: 20130627
  10. VESANOID [Suspect]
     Dosage: 1 DF, UNKNOWN
     Route: 065
     Dates: start: 20130704, end: 20130705
  11. VESANOID [Suspect]
     Dosage: 1 DF, UNKNOWN
     Route: 065
     Dates: start: 20130725, end: 20130807
  12. VESANOID [Suspect]
     Dosage: 1 DF, UNKNOWN
     Route: 065
     Dates: start: 20130828, end: 20130909
  13. VESANOID [Suspect]
     Dosage: 1 DF, UNKNOWN
     Route: 065
     Dates: start: 20130709, end: 20130709
  14. TRISENOX [Suspect]
     Indication: PRODUCT USED FOR UNKNOWN INDICATION
     Dosage: 7.20 MG, UNKNOWN
     Route: 042
     Dates: start: 20130626, end: 20130630
  15. TRISENOX [Suspect]
     Dosage: 7.2 MG, UNKNOWN
     Route: 042
     Dates: start: 20130704, end: 20130705
  16. TRISENOX [Suspect]
     Dosage: 7.2 MG, UNKNOWN
     Route: 042
     Dates: start: 20130709
  17. TRISENOX [Suspect]
     Dosage: 7.2 MG, UNKNOWN
     Route: 042
     Dates: start: 20130709
  18. TRISENOX [Suspect]
     Dosage: 7.2 MG, UNKNOWN
     Route: 042
     Dates: start: 20130715
  19. TRISENOX [Suspect]
     Dosage: 7.2 MG, UNKNOWN
     Route: 042
     Dates: start: 20130719
  20. TRISENOX [Suspect]
     Dosage: 7.2 MG, UNKNOWN
     Route: 042
     Dates: start: 20130828, end: 20130830
  21. TRISENOX [Suspect]
     Dosage: 7.2 MG, UNKNOWN
     Route: 042
     Dates: start: 20130903, end: 20130905
  22. INEXIUM [Concomitant]
     Indication: PRODUCT USED FOR UNKNOWN INDICATION
     Dosage: 20 MG, QD
     Route: 065
  23. CARDENSIEL [Concomitant]
     Indication: PRODUCT USED FOR UNKNOWN INDICATION
     Dosage: 2.5 MG, QD
     Route: 065
     Dates: start: 201307
  24. SERESTA [Concomitant]
     Indication: PRODUCT USED FOR UNKNOWN INDICATION
     Dosage: 3 DF, QD
     Route: 065
     Dates: start: 201307
  25. IMOVANE [Concomitant]
     Indication: PRODUCT USED FOR UNKNOWN INDICATION
     Dosage: 7.5 MG, QD
     Route: 065
     Dates: start: 201306

REACTIONS (7)
  - Renal failure acute [Recovering/Resolving]
  - Sepsis [Unknown]
  - Retinoic acid syndrome [Recovered/Resolved]
  - Lung disorder [Unknown]
  - Diarrhoea infectious [Unknown]
  - Oedema [Unknown]
  - Breath sounds abnormal [Unknown]
